FAERS Safety Report 22635305 (Version 1)
Quarter: 2023Q2

REPORT INFORMATION
  Report Type: Spontaneous
  Country: CN (occurrence: CN)
  Receive Date: 20230623
  Receipt Date: 20230623
  Transmission Date: 20230721
  Serious: Yes (Other)
  Sender: FDA-Public Use
  Company Number: CN-PFIZER INC-PV202300109451

PATIENT
  Age: 35 Year
  Sex: Female
  Weight: 88.5 kg

DRUGS (2)
  1. CARBOPROST TROMETHAMINE [Suspect]
     Active Substance: CARBOPROST TROMETHAMINE
     Indication: Uterine hypotonus
     Dosage: 250 UG, 1X/DAY
     Route: 030
     Dates: start: 20230613, end: 20230613
  2. CARBOPROST TROMETHAMINE [Suspect]
     Active Substance: CARBOPROST TROMETHAMINE
     Indication: Haemostasis

REACTIONS (12)
  - Dyspnoea [Recovering/Resolving]
  - Pruritus [Recovering/Resolving]
  - Palpitations [Recovering/Resolving]
  - Nausea [Recovering/Resolving]
  - Vomiting [Recovering/Resolving]
  - Pallor [Recovering/Resolving]
  - Hypoaesthesia oral [Recovering/Resolving]
  - Rash [Recovering/Resolving]
  - Hypoaesthesia [Recovering/Resolving]
  - Chest discomfort [Recovering/Resolving]
  - Asthenia [Recovering/Resolving]
  - Dizziness [Recovering/Resolving]

NARRATIVE: CASE EVENT DATE: 20230613
